FAERS Safety Report 13663896 (Version 1)
Quarter: 2017Q2

REPORT INFORMATION
  Report Type: Spontaneous
  Country: US (occurrence: US)
  Receive Date: 20170619
  Receipt Date: 20170619
  Transmission Date: 20170830
  Serious: Yes (Death, Hospitalization, Other)
  Sender: FDA-Public Use
  Company Number: US-ZYDUS-015474

PATIENT
  Age: 19 Year
  Sex: Male

DRUGS (11)
  1. LEVETIRACETAM. [Suspect]
     Active Substance: LEVETIRACETAM
     Indication: SEIZURE
     Route: 048
  2. ZONISAMIDE. [Suspect]
     Active Substance: ZONISAMIDE
     Indication: SEIZURE
     Route: 065
  3. LACOSAMIDE. [Suspect]
     Active Substance: LACOSAMIDE
     Indication: SEIZURE
     Route: 065
  4. QUETIAPINE/QUETIAPINE FUMARATE [Concomitant]
     Indication: AGITATION
     Route: 065
  5. PHENOBARBITAL. [Suspect]
     Active Substance: PHENOBARBITAL
     Indication: SEIZURE
     Route: 048
  6. LEVETIRACETAM. [Suspect]
     Active Substance: LEVETIRACETAM
     Indication: SEIZURE
     Route: 048
  7. ZONISAMIDE. [Suspect]
     Active Substance: ZONISAMIDE
     Indication: SEIZURE
     Route: 065
  8. PHENOBARBITAL. [Suspect]
     Active Substance: PHENOBARBITAL
     Indication: SEIZURE
     Route: 048
  9. CLORAZEPIC ACID [Suspect]
     Active Substance: CLORAZEPIC ACID
     Indication: SEIZURE
     Route: 048
  10. LACOSAMIDE. [Suspect]
     Active Substance: LACOSAMIDE
     Indication: SEIZURE
     Route: 065
  11. LORAZEPAM. [Concomitant]
     Active Substance: LORAZEPAM
     Indication: SEIZURE
     Route: 042

REACTIONS (18)
  - Disturbance in attention [Recovered/Resolved]
  - Disorientation [Recovered/Resolved]
  - Status epilepticus [Fatal]
  - Condition aggravated [Unknown]
  - Lipase increased [Unknown]
  - Delirium [Unknown]
  - Small intestinal obstruction [Unknown]
  - Paranoia [Unknown]
  - Nystagmus [Unknown]
  - Saccadic eye movement [Unknown]
  - Abdominal distension [Recovered/Resolved]
  - Hallucination [Unknown]
  - Hyperreflexia [Recovered/Resolved]
  - Myoclonus [Unknown]
  - Pancreatitis acute [Unknown]
  - Leukocytosis [Unknown]
  - Muscle twitching [Unknown]
  - Unresponsive to stimuli [Unknown]
